FAERS Safety Report 17241988 (Version 2)
Quarter: 2020Q1

REPORT INFORMATION
  Report Type: Spontaneous
  Country: US (occurrence: US)
  Receive Date: 20200107
  Receipt Date: 20200327
  Transmission Date: 20200409
  Serious: Yes (Other)
  Sender: FDA-Public Use
  Company Number: NVSC2020US000856

PATIENT
  Age: 16 Year
  Sex: Female

DRUGS (2)
  1. MYCOPHENOLATE MOFETIL. [Suspect]
     Active Substance: MYCOPHENOLATE MOFETIL
     Indication: INTERSTITIAL LUNG DISEASE
     Dosage: UNK
     Route: 065
  2. RITUXIMAB. [Suspect]
     Active Substance: RITUXIMAB
     Indication: INTERSTITIAL LUNG DISEASE
     Dosage: UNK
     Route: 065

REACTIONS (5)
  - Hypercapnia [Unknown]
  - Hypoxia [Unknown]
  - Product use in unapproved indication [Unknown]
  - Respiratory failure [Unknown]
  - Interstitial lung disease [Unknown]
